FAERS Safety Report 11387319 (Version 1)
Quarter: 2015Q3

REPORT INFORMATION
  Report Type: Spontaneous
  Country: FR (occurrence: FR)
  Receive Date: 20150817
  Receipt Date: 20150817
  Transmission Date: 20151125
  Serious: Yes (Other)
  Sender: FDA-Public Use
  Company Number: FR-HOSPIRA-2972164

PATIENT
  Age: 3 Year
  Sex: Female

DRUGS (24)
  1. VINCRISTINE HOSPIRA [Suspect]
     Active Substance: VINCRISTINE
     Indication: MALIGNANT NEOPLASM OF THORAX
     Route: 042
     Dates: start: 20140922
  2. MESNA. [Concomitant]
     Active Substance: MESNA
     Indication: PRODUCT USED FOR UNKNOWN INDICATION
  3. COSMEGEN [Suspect]
     Active Substance: DACTINOMYCIN
     Indication: MALIGNANT NEOPLASM OF THORAX
     Route: 042
     Dates: start: 20141107
  4. IFOSFAMIDE. [Suspect]
     Active Substance: IFOSFAMIDE
     Indication: MALIGNANT NEOPLASM OF THORAX
     Dosage: TWICE
     Route: 042
     Dates: start: 20140922
  5. IFOSFAMIDE. [Suspect]
     Active Substance: IFOSFAMIDE
     Indication: MALIGNANT NEOPLASM OF THORAX
     Dosage: ONCE
     Route: 042
     Dates: start: 20141015
  6. COSMEGEN [Suspect]
     Active Substance: DACTINOMYCIN
     Indication: MALIGNANT NEOPLASM OF THORAX
     Route: 042
     Dates: start: 20141127
  7. DOXORUBICIN [Suspect]
     Active Substance: DOXORUBICIN
     Indication: MALIGNANT NEOPLASM OF THORAX
     Route: 042
     Dates: start: 20140922, end: 20150414
  8. VINCRISTINE HOSPIRA [Suspect]
     Active Substance: VINCRISTINE
     Indication: MALIGNANT NEOPLASM OF THORAX
     Route: 042
     Dates: start: 20150114
  9. VINCRISTINE HOSPIRA [Suspect]
     Active Substance: VINCRISTINE
     Indication: MALIGNANT NEOPLASM OF THORAX
     Dosage: 75% OF THE SCHEDULED DOSE
     Route: 042
     Dates: start: 20150323, end: 20150325
  10. COSMEGEN [Suspect]
     Active Substance: DACTINOMYCIN
     Indication: MALIGNANT NEOPLASM OF THORAX
     Route: 042
     Dates: start: 20150114
  11. VINCRISTINE HOSPIRA [Suspect]
     Active Substance: VINCRISTINE
     Indication: MALIGNANT NEOPLASM OF THORAX
     Route: 042
     Dates: start: 20141107, end: 2015
  12. VINCRISTINE HOSPIRA [Suspect]
     Active Substance: VINCRISTINE
     Indication: MALIGNANT NEOPLASM OF THORAX
     Route: 042
     Dates: start: 20141127
  13. IFOSFAMIDE. [Suspect]
     Active Substance: IFOSFAMIDE
     Indication: MALIGNANT NEOPLASM OF THORAX
     Route: 042
     Dates: start: 20150114, end: 20150116
  14. COSMEGEN [Suspect]
     Active Substance: DACTINOMYCIN
     Indication: MALIGNANT NEOPLASM OF THORAX
     Route: 042
     Dates: start: 20141015
  15. CYCLOPHOSPHAMIDE. [Concomitant]
     Active Substance: CYCLOPHOSPHAMIDE
     Indication: PRODUCT USED FOR UNKNOWN INDICATION
     Route: 042
     Dates: start: 20150116
  16. VINCRISTINE HOSPIRA [Suspect]
     Active Substance: VINCRISTINE
     Indication: MALIGNANT NEOPLASM OF THORAX
     Route: 042
     Dates: start: 20141015
  17. IFOSFAMIDE. [Suspect]
     Active Substance: IFOSFAMIDE
     Indication: MALIGNANT NEOPLASM OF THORAX
     Dosage: TWICE
     Route: 042
     Dates: start: 20141107
  18. COSMEGEN [Suspect]
     Active Substance: DACTINOMYCIN
     Indication: MALIGNANT NEOPLASM OF THORAX
     Route: 042
     Dates: start: 20150207, end: 20150209
  19. ZOPHREN                            /00955301/ [Concomitant]
     Active Substance: ONDANSETRON
     Indication: PRODUCT USED FOR UNKNOWN INDICATION
  20. VINCRISTINE HOSPIRA [Suspect]
     Active Substance: VINCRISTINE
     Indication: MALIGNANT NEOPLASM OF THORAX
     Dosage: 50% OF THE SCHEDULED DOSE
     Route: 042
     Dates: end: 20150414
  21. VINCRISTINE HOSPIRA [Suspect]
     Active Substance: VINCRISTINE
     Indication: MALIGNANT NEOPLASM OF THORAX
     Route: 042
     Dates: start: 20150207, end: 20150209
  22. IFOSFAMIDE. [Suspect]
     Active Substance: IFOSFAMIDE
     Indication: MALIGNANT NEOPLASM OF THORAX
     Dosage: TWICE
     Route: 042
     Dates: start: 20141127
  23. CYCLOPHOSPHAMIDE. [Concomitant]
     Active Substance: CYCLOPHOSPHAMIDE
     Indication: PRODUCT USED FOR UNKNOWN INDICATION
     Route: 042
     Dates: start: 20150207, end: 20150209
  24. COSMEGEN [Suspect]
     Active Substance: DACTINOMYCIN
     Indication: MALIGNANT NEOPLASM OF THORAX
     Route: 042
     Dates: start: 20140922

REACTIONS (2)
  - Paraesthesia [Not Recovered/Not Resolved]
  - Gait disturbance [Not Recovered/Not Resolved]

NARRATIVE: CASE EVENT DATE: 201501
